FAERS Safety Report 4357753-0 (Version None)
Quarter: 2004Q2

REPORT INFORMATION
  Report Type: 
  Country: None (occurrence: None)
  Receive Date: 20040513
  Receipt Date: 20040504
  Transmission Date: 20050107
  Serious: Yes (Hospitalization)
  Sender: FDA-Public Use
  Company Number: FR-BRISTOL-MYERS SQUIBB COMPANY-12578357

PATIENT
  Age: 80 Year
  Sex: Female

DRUGS (5)
  1. MUCOMYST [Suspect]
     Dates: start: 20040219, end: 20040224
  2. DI-ANTALVIC [Suspect]
     Route: 048
     Dates: start: 20040222, end: 20040224
  3. RULID [Suspect]
     Route: 048
     Dates: start: 20040220, end: 20040224
  4. OFLOCET [Suspect]
     Route: 048
     Dates: start: 20040220, end: 20040224
  5. LOVENOX [Concomitant]

REACTIONS (1)
  - THROMBOCYTOPENIA [None]
